FAERS Safety Report 8272980-8 (Version None)
Quarter: 2012Q2

REPORT INFORMATION
  Report Type: 
  Country: None (occurrence: None)
  Receive Date: 20120411
  Receipt Date: 20120403
  Transmission Date: 20120825
  Serious: Yes (Other)
  Sender: FDA-Public Use
  Company Number: US-TEVA-328327USA

PATIENT
  Sex: Female
  Weight: 65.83 kg

DRUGS (1)
  1. PLAN B ONE-STEP [Suspect]
     Indication: POST COITAL CONTRACEPTION
     Dosage: 1.5 MILLIGRAM;
     Route: 048
     Dates: start: 20120309, end: 20120309

REACTIONS (7)
  - MYALGIA [None]
  - DRUG INEFFECTIVE [None]
  - UTERINE HAEMORRHAGE [None]
  - MENSTRUATION IRREGULAR [None]
  - ABDOMINAL PAIN LOWER [None]
  - PREGNANCY AFTER POST COITAL CONTRACEPTION [None]
  - ABORTION SPONTANEOUS [None]
